FAERS Safety Report 11985298 (Version 1)
Quarter: 2016Q1

REPORT INFORMATION
  Report Type: Not Available
  Country: US (occurrence: US)
  Receive Date: 20160201
  Receipt Date: 20160201
  Transmission Date: 20160526
  Serious: No
  Sender: FDA-Public Use
  Company Number: US-ANIPHARMA-2015-US-000479

PATIENT
  Age: 62 Year
  Sex: Male
  Weight: 113.4 kg

DRUGS (3)
  1. LEVOTHYROXINE. [Concomitant]
     Active Substance: LEVOTHYROXINE
  2. LOSARTAN. [Concomitant]
     Active Substance: LOSARTAN
  3. FLUVOXAMINE MALEATE 50 MG [Suspect]
     Active Substance: FLUVOXAMINE MALEATE
     Dosage: 50 MG DAILY
     Route: 048

REACTIONS (4)
  - Food interaction [Unknown]
  - Drug ineffective [Unknown]
  - Depression [None]
  - Anger [None]
